FAERS Safety Report 11540223 (Version 1)
Quarter: 2015Q3

REPORT INFORMATION
  Report Type: Spontaneous
  Country: US (occurrence: US)
  Receive Date: 20150923
  Receipt Date: 20150923
  Transmission Date: 20151125
  Serious: No
  Sender: FDA-Public Use
  Company Number: US-PFIZER INC-2015286972

PATIENT

DRUGS (1)
  1. TIKOSYN [Suspect]
     Active Substance: DOFETILIDE
     Dosage: 0.25 MG, 1X/DAY, 250MCG, BY MOUTH ONCE A DAY
     Route: 048
     Dates: start: 20150822

REACTIONS (4)
  - Somnolence [Unknown]
  - Sleep phase rhythm disturbance [Unknown]
  - Sedation [Unknown]
  - Hunger [Unknown]

NARRATIVE: CASE EVENT DATE: 201508
